FAERS Safety Report 4766908-2 (Version None)
Quarter: 2005Q3

REPORT INFORMATION
  Report Type: 
  Country: None (occurrence: None)
  Receive Date: 20050908
  Receipt Date: 20050825
  Transmission Date: 20060218
  Serious: Yes (Hospitalization)
  Sender: FDA-Public Use
  Company Number: 217213

PATIENT
  Age: 68 Year
  Sex: Female

DRUGS (9)
  1. MABTHERA (RITIXUMAB) CONC FOR SOLUTION FOR INFUSION [Suspect]
     Indication: NON-HODGKIN'S LYMPHOMA
     Dosage: 375 MG, INTRAVENOUS
     Route: 042
     Dates: start: 20040806, end: 20050118
  2. CYCLOPHOSPHAMIDE [Suspect]
     Indication: NON-HODGKIN'S LYMPHOMA
     Dosage: 750 MG, INTRAVENOUS
     Route: 042
     Dates: start: 20040806, end: 20050118
  3. DOXORUBICIN HCL [Suspect]
     Indication: NON-HODGKIN'S LYMPHOMA
     Dosage: 50 MG, INTRAVENOUS
     Route: 042
     Dates: start: 20040806, end: 20050118
  4. VINCRISTINE [Suspect]
     Indication: NON-HODGKIN'S LYMPHOMA
     Dosage: 1.4 MG, INTRAVENOUS
     Route: 042
     Dates: start: 20040806, end: 20050118
  5. PREDNISONE [Suspect]
     Indication: NON-HODGKIN'S LYMPHOMA
     Dosage: 100 MG, DAYS 1-5 OF CYCLE, ORAL
     Route: 048
     Dates: start: 20040806, end: 20050118
  6. EBETREXAT (METHOTREXATE) [Concomitant]
  7. FOLIC ACID [Concomitant]
  8. PREDNISONE [Concomitant]
  9. DICLOSTAD (DICLOFENAC SODIUM) [Concomitant]

REACTIONS (1)
  - OSTEONECROSIS [None]
